FAERS Safety Report 23533681 (Version 2)
Quarter: 2024Q1

REPORT INFORMATION
  Report Type: Spontaneous
  Country: US (occurrence: US)
  Receive Date: 20240216
  Receipt Date: 20240220
  Transmission Date: 20240410
  Serious: No
  Sender: FDA-Public Use
  Company Number: US-SANOFI-01938298

PATIENT
  Sex: Female

DRUGS (1)
  1. DUPIXENT [Suspect]
     Active Substance: DUPILUMAB
     Indication: Neurodermatitis
     Dosage: 300 MG, QOW
     Dates: start: 202210

REACTIONS (4)
  - Blister [Unknown]
  - Illness [Recovering/Resolving]
  - Neurodermatitis [Recovering/Resolving]
  - Therapeutic product effect variable [Unknown]
